FAERS Safety Report 20727192 (Version 2)
Quarter: 2022Q2

REPORT INFORMATION
  Report Type: Report from Study
  Country: US (occurrence: US)
  Receive Date: 20220419
  Receipt Date: 20220421
  Transmission Date: 20220721
  Serious: Yes (Hospitalization, Other)
  Sender: FDA-Public Use
  Company Number: US-BAYER-2021A218915

PATIENT
  Age: 78 Year
  Sex: Female
  Weight: 77.180 kg

DRUGS (3)
  1. LONSURF [Suspect]
     Active Substance: TIPIRACIL HYDROCHLORIDE\TRIFLURIDINE
     Indication: Colon cancer stage IV
     Dosage: CYCLE UNKNOWN
     Route: 048
     Dates: end: 202109
  2. STIVARGA [Suspect]
     Active Substance: REGORAFENIB
     Indication: Product used for unknown indication
  3. PROMETHAZINE [Concomitant]
     Active Substance: PROMETHAZINE HYDROCHLORIDE

REACTIONS (10)
  - Intestinal obstruction [Unknown]
  - Pneumonia [Unknown]
  - COVID-19 [Unknown]
  - Dysphonia [Unknown]
  - Hyperhidrosis [Unknown]
  - Disease progression [Unknown]
  - Vomiting [Unknown]
  - Asthenia [Unknown]
  - Hypertension [Unknown]
  - Heart rate increased [Unknown]

NARRATIVE: CASE EVENT DATE: 20210901
